FAERS Safety Report 10635842 (Version 1)
Quarter: 2014Q4

REPORT INFORMATION
  Report Type: Spontaneous
  Country: US (occurrence: US)
  Receive Date: 20141205
  Receipt Date: 20141205
  Transmission Date: 20150529
  Serious: No
  Sender: FDA-Public Use
  Company Number: US-GLAXOSMITHKLINE-US2014GSK027414

PATIENT
  Sex: Female

DRUGS (1)
  1. FABIOR [Suspect]
     Active Substance: TAZAROTENE
     Indication: PRODUCT USED FOR UNKNOWN INDICATION
     Dosage: UNK

REACTIONS (7)
  - Blister [Unknown]
  - Erythema [Unknown]
  - Skin texture abnormal [Unknown]
  - Skin discolouration [Unknown]
  - Burns second degree [Unknown]
  - Scar [Unknown]
  - Off label use [Unknown]
